FAERS Safety Report 20180391 (Version 4)
Quarter: 2022Q1

REPORT INFORMATION
  Report Type: Spontaneous
  Country: US (occurrence: US)
  Receive Date: 20211214
  Receipt Date: 20220209
  Transmission Date: 20220423
  Serious: Yes (Hospitalization)
  Sender: FDA-Public Use
  Company Number: US-Global Blood Therapeutics Inc-US-GBT-21-03634

PATIENT
  Age: 35 Year
  Sex: Male

DRUGS (2)
  1. OXBRYTA [Suspect]
     Active Substance: VOXELOTOR
     Indication: Sickle cell disease
     Route: 048
     Dates: start: 20200323
  2. HYDROXYUREA [Concomitant]
     Active Substance: HYDROXYUREA
     Indication: Product used for unknown indication
     Dosage: NOT PROVIDED

REACTIONS (6)
  - Sickle cell anaemia with crisis [Recovered/Resolved]
  - Sickle cell anaemia with crisis [Recovered/Resolved]
  - COVID-19 [Recovered/Resolved]
  - Sickle cell anaemia with crisis [Recovered/Resolved]
  - Product dose omission issue [Unknown]
  - Treatment noncompliance [Unknown]

NARRATIVE: CASE EVENT DATE: 20211006
